FAERS Safety Report 6711110-8 (Version None)
Quarter: 2010Q2

REPORT INFORMATION
  Report Type: 
  Country: None (occurrence: None)
  Receive Date: 20100505
  Receipt Date: 20100421
  Transmission Date: 20101027
  Serious: Yes (Hospitalization, Other)
  Sender: FDA-Public Use
  Company Number: PHHY2010FR26568

PATIENT
  Sex: Female

DRUGS (5)
  1. RASILEZ [Suspect]
     Dosage: UNK
     Route: 048
     Dates: end: 20100325
  2. ALPRAZOLAM [Suspect]
     Dosage: UNK
     Route: 048
     Dates: end: 20100325
  3. OLMESARTAN MEDOXOMIL [Suspect]
     Dosage: UNK
     Route: 048
     Dates: end: 20100325
  4. IXPRIM [Suspect]
     Dosage: UNK
     Route: 048
     Dates: end: 20100325
  5. VASTAREL [Concomitant]

REACTIONS (4)
  - CREATININE RENAL CLEARANCE DECREASED [None]
  - FALL [None]
  - HYPOALBUMINAEMIA [None]
  - HYPOPROTEINAEMIA [None]
